FAERS Safety Report 23819308 (Version 1)
Quarter: 2024Q2

REPORT INFORMATION
  Report Type: Spontaneous
  Country: US (occurrence: US)
  Receive Date: 20240506
  Receipt Date: 20240506
  Transmission Date: 20240715
  Serious: No
  Sender: FDA-Public Use
  Company Number: US-HALEON-2172027

PATIENT
  Sex: Male

DRUGS (1)
  1. SENSODYNE REPAIR AND PROTECT [Suspect]
     Active Substance: STANNOUS FLUORIDE
     Indication: Product used for unknown indication
     Dosage: EXPDATE:202302

REACTIONS (2)
  - Burning sensation [Recovered/Resolved]
  - Expired product administered [Unknown]
